FAERS Safety Report 8450987-5 (Version None)
Quarter: 2012Q2

REPORT INFORMATION
  Report Type: 
  Country: None (occurrence: None)
  Receive Date: 20120620
  Receipt Date: 20120611
  Transmission Date: 20120825
  Serious: Yes (Other)
  Sender: FDA-Public Use
  Company Number: US-ROCHE-1060761

PATIENT
  Sex: Female
  Weight: 61.29 kg

DRUGS (2)
  1. ACCUTANE [Suspect]
     Indication: ACNE
     Route: 048
     Dates: start: 20030101, end: 20040101
  2. ACCUTANE [Suspect]
     Route: 048
     Dates: start: 20040323, end: 20040723

REACTIONS (5)
  - DEPRESSION [None]
  - CROHN'S DISEASE [None]
  - SKIN EXFOLIATION [None]
  - INJURY [None]
  - APHTHOUS STOMATITIS [None]
